FAERS Safety Report 6106399-2 (Version None)
Quarter: 2009Q1

REPORT INFORMATION
  Report Type: 
  Country: None (occurrence: None)
  Receive Date: 20090306
  Receipt Date: 20090212
  Transmission Date: 20090719
  Serious: Yes (Death)
  Sender: FDA-Public Use
  Company Number: ML-B.I. PHARMACEUTICALS,INC./RIDGEFIELD-2009-DE-01538GD

PATIENT

DRUGS (3)
  1. TRIOMUNE [Suspect]
     Indication: HIV INFECTION
  2. NEVIRAPINE [Suspect]
     Indication: HIV INFECTION
  3. COMBIVIR [Suspect]
     Indication: HIV INFECTION

REACTIONS (2)
  - DRUG INEFFECTIVE [None]
  - OPPORTUNISTIC INFECTION [None]
